FAERS Safety Report 9418157 (Version 1)
Quarter: 2013Q3

REPORT INFORMATION
  Report Type: Spontaneous
  Country: US (occurrence: US)
  Receive Date: 20130724
  Receipt Date: 20130724
  Transmission Date: 20140515
  Serious: Yes (Hospitalization, Other)
  Sender: FDA-Public Use
  Company Number: US-BAXTER-2013BAX027023

PATIENT
  Age: 73 Year
  Sex: Male

DRUGS (2)
  1. DIANEAL LOW CALCIUM [Suspect]
     Indication: PERITONEAL DIALYSIS
     Route: 033
     Dates: start: 20100606, end: 20130612
  2. DIANEAL LOW CALCIUM [Suspect]
     Indication: PERITONEAL DIALYSIS
     Route: 033
     Dates: start: 20100606, end: 20130612

REACTIONS (4)
  - Mental status changes [Recovered/Resolved]
  - Asthenia [Recovered/Resolved]
  - Peritonitis bacterial [Recovered/Resolved]
  - Hypotension [Recovered/Resolved]
